FAERS Safety Report 9354131 (Version 3)
Quarter: 2013Q3

REPORT INFORMATION
  Report Type: Spontaneous
  Country: US (occurrence: US)
  Receive Date: 20130618
  Receipt Date: 20130726
  Transmission Date: 20140515
  Serious: No
  Sender: FDA-Public Use
  Company Number: US-GLAXOSMITHKLINE-A1026931A

PATIENT
  Age: 84 Year
  Sex: Male

DRUGS (4)
  1. SEREVENT [Suspect]
     Indication: CHRONIC OBSTRUCTIVE PULMONARY DISEASE
     Dosage: 1PUFF PER DAY
     Route: 055
  2. WARFARIN [Concomitant]
  3. HYDROCODONE [Concomitant]
  4. VITAMIN D [Concomitant]

REACTIONS (2)
  - Dyspnoea [Recovered/Resolved]
  - Product quality issue [Unknown]
